FAERS Safety Report 8695264 (Version 2)
Quarter: 2012Q4

REPORT INFORMATION
  Report Type: Report from Study
  Country: JP (occurrence: JP)
  Receive Date: 20120731
  Receipt Date: 20120904
  Transmission Date: 20130627
  Serious: Yes (Hospitalization)
  Sender: FDA-Public Use
  Company Number: JP-009507513-1207JPN010124

PATIENT

DRUGS (11)
  1. PEGINTRON [Suspect]
     Indication: HEPATITIS C
     Dosage: 1.5 Microgram per kilogram, qw
     Route: 058
     Dates: start: 20120510
  2. REBETOL [Suspect]
     Indication: HEPATITIS C
     Dosage: 400 mg, qd
     Route: 048
     Dates: start: 20120510, end: 20120718
  3. REBETOL [Suspect]
     Dosage: 200 mg, qd
     Route: 048
     Dates: start: 20120719
  4. TELAVIC [Suspect]
     Indication: HEPATITIS C
     Dosage: 2250 mg, qd
     Route: 048
     Dates: start: 20120510, end: 20120613
  5. TELAVIC [Suspect]
     Dosage: 1500 mg, qd
     Route: 048
     Dates: start: 20120614
  6. ZYLORIC [Concomitant]
     Dosage: 100 mg, qd
     Route: 048
  7. EPADEL [Concomitant]
     Indication: PROPHYLAXIS
     Dosage: 1800 mg, qd
     Route: 048
     Dates: start: 20120510
  8. LIVALO [Concomitant]
     Dosage: 2 mg, qd
     Route: 048
     Dates: start: 20120510
  9. ROHYPNOL [Concomitant]
     Dosage: 1 mg, qd
     Route: 048
  10. LENDORMIN D [Concomitant]
     Dosage: 0.25 mg,bid
     Route: 048
  11. ROZEREM [Concomitant]
     Dosage: 8 mg, qd
     Route: 048

REACTIONS (3)
  - Hyperuricaemia [Not Recovered/Not Resolved]
  - Haemoglobin decreased [Recovering/Resolving]
  - Insomnia [None]
